FAERS Safety Report 13836174 (Version 5)
Quarter: 2018Q2

REPORT INFORMATION
  Report Type: Spontaneous
  Country: JP (occurrence: JP)
  Receive Date: 20170804
  Receipt Date: 20180626
  Transmission Date: 20180711
  Serious: Yes (Death, Hospitalization, Other)
  Sender: FDA-Public Use
  Company Number: JP-009507513-1706JPN001999J

PATIENT
  Age: 75 Year
  Sex: Male
  Weight: 53 kg

DRUGS (1)
  1. KEYTRUDA [Suspect]
     Active Substance: PEMBROLIZUMAB
     Indication: SQUAMOUS CELL CARCINOMA OF LUNG
     Dosage: 200 MG, Q3W
     Route: 041
     Dates: start: 20170609

REACTIONS (2)
  - Malignant neoplasm progression [Fatal]
  - Decreased appetite [Recovering/Resolving]

NARRATIVE: CASE EVENT DATE: 20170609
